FAERS Safety Report 8881651 (Version 1)
Quarter: 2012Q4

REPORT INFORMATION
  Report Type: 
  Country: KR (occurrence: KR)
  Receive Date: 20121102
  Receipt Date: 20121102
  Transmission Date: 20130627
  Serious: Yes (Other)
  Sender: FDA-Public Use
  Company Number: PHHY2012KR098906

PATIENT
  Age: 43 Year
  Sex: Female

DRUGS (2)
  1. 5-FLUOROURACIL [Suspect]
     Indication: CERVIX CARCINOMA
     Dosage: 1700 mg, Daily for 5 days (Seventh cycle)
     Route: 051
  2. CISPLATIN [Concomitant]
     Indication: CERVIX CARCINOMA
     Dosage: 100 mg, at initial day

REACTIONS (3)
  - Leukoencephalopathy [Recovered/Resolved]
  - Tremor [Recovered/Resolved]
  - Dysarthria [Recovered/Resolved]
